FAERS Safety Report 14837054 (Version 1)
Quarter: 2018Q2

REPORT INFORMATION
  Report Type: Spontaneous
  Country: DE (occurrence: DE)
  Receive Date: 20180502
  Receipt Date: 20180502
  Transmission Date: 20180711
  Serious: Yes (Hospitalization, Other)
  Sender: FDA-Public Use
  Company Number: DE-UCBSA-2018018695

PATIENT
  Age: 28 Year
  Sex: Female

DRUGS (11)
  1. BRIVARACETAM [Suspect]
     Active Substance: BRIVARACETAM
     Indication: PETIT MAL EPILEPSY
     Dosage: 50 MG PER DAY
  2. LAMOTRIGINE. [Suspect]
     Active Substance: LAMOTRIGINE
     Dosage: 450 MG
  3. LAMOTRIGINE. [Suspect]
     Active Substance: LAMOTRIGINE
     Indication: PETIT MAL EPILEPSY
     Dosage: 400 MG PER DAY
  4. LORAZEPAM. [Suspect]
     Active Substance: LORAZEPAM
     Indication: PETIT MAL EPILEPSY
     Dosage: 4 MG
     Route: 042
  5. BRIVARACETAM [Suspect]
     Active Substance: BRIVARACETAM
     Indication: OFF LABEL USE
     Dosage: 200 MG
  6. LACOSAMIDE. [Suspect]
     Active Substance: LACOSAMIDE
     Indication: PETIT MAL EPILEPSY
     Dosage: 200 MG
     Route: 042
  7. LEVETIRACETAM. [Suspect]
     Active Substance: LEVETIRACETAM
     Indication: PETIT MAL EPILEPSY
     Dosage: 1000 MG PER DAY
  8. LEVETIRACETAM. [Suspect]
     Active Substance: LEVETIRACETAM
     Indication: OFF LABEL USE
  9. VALPROATE [Suspect]
     Active Substance: VALPROIC ACID
     Indication: PETIT MAL EPILEPSY
     Dosage: 1600 MG
     Route: 042
  10. BRIVARACETAM [Suspect]
     Active Substance: BRIVARACETAM
     Dosage: 300 MG
     Route: 042
  11. LACOSAMIDE. [Suspect]
     Active Substance: LACOSAMIDE
     Indication: OFF LABEL USE

REACTIONS (5)
  - Off label use [Unknown]
  - Petit mal epilepsy [Recovered/Resolved]
  - Depression [Unknown]
  - Anxiety disorder [Unknown]
  - Hypertension [Unknown]
